FAERS Safety Report 10469840 (Version 1)
Quarter: 2014Q3

REPORT INFORMATION
  Report Type: Spontaneous
  Country: US (occurrence: None)
  Receive Date: 20140919
  Receipt Date: 20140919
  Transmission Date: 20150326
  Serious: Yes (Hospitalization, Other)
  Sender: FDA-Public Use
  Company Number: 2007S1002179

PATIENT
  Age: 66 Year
  Sex: Male

DRUGS (7)
  1. PHOSPHO-SODA [Suspect]
     Active Substance: SODIUM PHOSPHATE, DIBASIC\SODIUM PHOSPHATE, MONOBASIC
     Indication: COLONOSCOPY
     Route: 048
     Dates: start: 2004, end: 2004
  2. ALLOPURINOL. [Concomitant]
     Active Substance: ALLOPURINOL
  3. ATARAX [Concomitant]
     Active Substance: HYDROXYZINE\HYDROXYZINE HYDROCHLORIDE
  4. PLAVIX (CLOPIDOGREL BISULFATE) [Concomitant]
  5. FOLIC ACID. [Concomitant]
     Active Substance: FOLIC ACID
  6. FLOMAX [Concomitant]
     Active Substance: TAMSULOSIN HYDROCHLORIDE
  7. TRICOR [Concomitant]
     Active Substance: FENOFIBRATE

REACTIONS (9)
  - Renal failure acute [None]
  - Metabolic acidosis [None]
  - Renal transplant [None]
  - Nephrogenic anaemia [None]
  - Renal artery stenosis [None]
  - Blood parathyroid hormone increased [None]
  - Coronary artery stenosis [None]
  - Renal failure chronic [None]
  - Haemodialysis [None]

NARRATIVE: CASE EVENT DATE: 200504
